FAERS Safety Report 6711754-3 (Version None)
Quarter: 2010Q2

REPORT INFORMATION
  Report Type: 
  Country: None (occurrence: None)
  Receive Date: 20100505
  Receipt Date: 20100428
  Transmission Date: 20101027
  Serious: Yes (Hospitalization)
  Sender: FDA-Public Use
  Company Number: A0857765A

PATIENT
  Age: 55 Year
  Sex: Female

DRUGS (1)
  1. ZANTAC [Suspect]
     Dosage: 300MG THREE TIMES PER DAY
     Route: 065

REACTIONS (4)
  - ABDOMINAL DISCOMFORT [None]
  - HEPATIC ENZYME INCREASED [None]
  - OROPHARYNGEAL DISCOMFORT [None]
  - TONGUE COATED [None]
